FAERS Safety Report 5151162-2 (Version None)
Quarter: 2006Q4

REPORT INFORMATION
  Report Type: 
  Country: None (occurrence: None)
  Receive Date: 20061115
  Receipt Date: 20060131
  Transmission Date: 20070319
  Serious: Yes (Death, Life-Threatening, Hospitalization)
  Sender: FDA-Public Use
  Company Number: US-BAYER-200610623BWH

PATIENT
  Age: 69 Year
  Sex: Female
  Weight: 79 kg

DRUGS (10)
  1. SORAFENIB [Suspect]
     Indication: METASTATIC RENAL CELL CARCINOMA
     Dosage: TOTAL DAILY DOSE: 800 MG  UNIT DOSE: 200 MG
     Route: 048
     Dates: start: 20051007, end: 20051114
  2. OXYCONTIN [Concomitant]
     Indication: PAIN
     Route: 048
  3. OXYCODONE HCL [Concomitant]
     Indication: PAIN
  4. TEMAZEPAM [Concomitant]
     Indication: ANXIETY
     Route: 048
  5. AMLODIPINE [Concomitant]
     Indication: HYPERTENSION
     Route: 048
  6. KLONOPIN [Concomitant]
     Indication: ANXIETY
     Route: 048
  7. DIOVAN [Concomitant]
     Indication: HYPERTENSION
     Route: 048
  8. ATARAX [Concomitant]
     Indication: ANTIALLERGIC THERAPY
     Route: 048
  9. NPH INSULIN [Concomitant]
     Indication: DIABETES MELLITUS
     Route: 058
  10. REGULAR INSULIN [Concomitant]
     Indication: DIABETES MELLITUS
     Route: 058

REACTIONS (7)
  - ANAEMIA [None]
  - FALL [None]
  - HAEMATEMESIS [None]
  - METASTATIC RENAL CELL CARCINOMA [None]
  - RENAL FAILURE ACUTE [None]
  - SMALL INTESTINAL HAEMORRHAGE [None]
  - TUMOUR INVASION [None]
